FAERS Safety Report 7787300-2 (Version None)
Quarter: 2011Q3

REPORT INFORMATION
  Report Type: 
  Country: None (occurrence: None)
  Receive Date: 20110929
  Receipt Date: 20110921
  Transmission Date: 20111222
  Serious: Yes (Other)
  Sender: FDA-Public Use
  Company Number: PHHY2011PT66372

PATIENT
  Sex: Female

DRUGS (4)
  1. DOCETAXEL [Suspect]
     Indication: BREAST NEOPLASM
     Dosage: 170 MG, QW3
     Dates: start: 20110602, end: 20110810
  2. PREDNISOLONE [Concomitant]
     Dosage: 250 MG, UNK
     Route: 042
  3. TROPISSETROM [Concomitant]
     Indication: NAUSEA
     Route: 042
  4. PREDNISOLONE [Concomitant]
     Indication: HYPERSENSITIVITY
     Dosage: 50 MG, BID
     Route: 048
     Dates: start: 20110621, end: 20110623

REACTIONS (3)
  - ERYTHEMA [None]
  - SKIN NECROSIS [None]
  - MUCOSAL INFLAMMATION [None]
